FAERS Safety Report 18575659 (Version 2)
Quarter: 2020Q4

REPORT INFORMATION
  Report Type: Spontaneous
  Country: SG (occurrence: SG)
  Receive Date: 20201203
  Receipt Date: 20201204
  Transmission Date: 20210114
  Serious: Yes (Other)
  Sender: FDA-Public Use
  Company Number: SG-IPSEN BIOPHARMACEUTICALS, INC.-2020-23977

PATIENT
  Age: 33 Year
  Sex: Female

DRUGS (1)
  1. DYSPORT [Suspect]
     Active Substance: ABOBOTULINUMTOXINA
     Indication: SKIN WRINKLING
     Dosage: 50 IU (CROW^S FEET)
     Route: 065
     Dates: start: 20201029, end: 20201029

REACTIONS (1)
  - Optic neuropathy [Unknown]

NARRATIVE: CASE EVENT DATE: 20201029
